FAERS Safety Report 10400406 (Version 1)
Quarter: 2014Q3

REPORT INFORMATION
  Report Type: Spontaneous
  Country: US (occurrence: US)
  Receive Date: 20140821
  Receipt Date: 20140821
  Transmission Date: 20150326
  Serious: No
  Sender: FDA-Public Use
  Company Number: US-ASTRAZENECA-2013SE90176

PATIENT
  Age: 70 Year
  Sex: Female
  Weight: 59.9 kg

DRUGS (24)
  1. SIMVASTATIN. [Concomitant]
     Active Substance: SIMVASTATIN
     Indication: BLOOD CHOLESTEROL
     Route: 048
     Dates: start: 2005
  2. VICODAN [Concomitant]
     Indication: PAIN
     Dosage: 700/ UNSURE PRN
     Route: 048
  3. SPIRIVA [Concomitant]
     Active Substance: TIOTROPIUM BROMIDE MONOHYDRATE
     Dosage: NOT REPORTED NR
     Route: 055
  4. CALCIUM WITH VITAMIN D [Concomitant]
     Active Substance: CALCIUM\VITAMIN D
     Indication: BONE DISORDER
     Route: 048
  5. GABAPENTIN. [Concomitant]
     Active Substance: GABAPENTIN
     Indication: MUSCLE SPASMS
     Dosage: 100 OR 200 MG DAILY
     Route: 048
  6. OMEPRAZOLE. [Suspect]
     Active Substance: OMEPRAZOLE
     Indication: ABDOMINAL DISCOMFORT
     Route: 048
  7. RENAL SOFT GEL CAPS [Concomitant]
     Indication: RENAL DISORDER
     Dosage: NOT REPORTED DAILY
     Route: 048
  8. IRON OTC [Concomitant]
     Indication: IRON DEFICIENCY
     Route: 048
  9. OXYCODONE [Concomitant]
     Active Substance: OXYCODONE
     Indication: PAIN
     Dosage: NOT REPORTED PRN
     Route: 048
  10. POTASSIUM [Concomitant]
     Active Substance: POTASSIUM
     Route: 048
  11. MAGNESIUM [Concomitant]
     Active Substance: MAGNESIUM
     Route: 048
  12. ATROVENT [Concomitant]
     Active Substance: IPRATROPIUM BROMIDE
     Dosage: 2-3 TIMES PER DAY PRN
     Route: 055
  13. VENTALIN HFA [Concomitant]
     Dosage: 2 PUFFS DAILY
     Route: 055
  14. VITAMIN C [Concomitant]
     Active Substance: ASCORBIC ACID
     Route: 048
  15. SYMBICORT [Suspect]
     Active Substance: BUDESONIDE\FORMOTEROL FUMARATE DIHYDRATE
     Indication: CHRONIC OBSTRUCTIVE PULMONARY DISEASE
     Dosage: 160 4.5 MCG, 1 PUFF BID
     Route: 055
  16. MONTOLUKAST [Concomitant]
     Indication: SINUSITIS
     Route: 048
  17. INTROPIUM BROMIDE [Concomitant]
     Dosage: UP TO 4 TIMES QD PRN
     Route: 055
  18. DOCOSATE [Concomitant]
     Indication: ABNORMAL FAECES
     Dosage: NOT REPORTED DAILY
     Route: 048
  19. FISH OIL [Concomitant]
     Active Substance: FISH OIL
     Dosage: NOT REPORTED PRN
     Route: 048
  20. ALBUTEROL NEBULIZER [Concomitant]
     Active Substance: ALBUTEROL
     Dosage: NOT REPORTED QID
     Route: 055
  21. MULTI VITAMIN WITH B COMPLEX [Concomitant]
     Dosage: NOT REPORTED DAILY
     Route: 048
  22. ADVAIR DISKUS [Suspect]
     Active Substance: FLUTICASONE PROPIONATE\SALMETEROL XINAFOATE
     Indication: CHRONIC OBSTRUCTIVE PULMONARY DISEASE
     Dosage: 250 50 DAILY
     Route: 055
     Dates: end: 20131209
  23. ALPRAZOLAM. [Concomitant]
     Active Substance: ALPRAZOLAM
     Indication: ANXIETY
     Route: 048
  24. ASPIRIN. [Concomitant]
     Active Substance: ASPIRIN
     Route: 048

REACTIONS (11)
  - Pyrexia [Not Recovered/Not Resolved]
  - Fatigue [Not Recovered/Not Resolved]
  - Dyspnoea [Not Recovered/Not Resolved]
  - Increased viscosity of bronchial secretion [Not Recovered/Not Resolved]
  - Chills [Not Recovered/Not Resolved]
  - Nausea [Not Recovered/Not Resolved]
  - Cough [Not Recovered/Not Resolved]
  - Intentional product misuse [Recovered/Resolved]
  - Off label use [Unknown]
  - Decreased appetite [Not Recovered/Not Resolved]
  - Memory impairment [Not Recovered/Not Resolved]

NARRATIVE: CASE EVENT DATE: 201311
